FAERS Safety Report 5494399-5 (Version None)
Quarter: 2007Q4

REPORT INFORMATION
  Report Type: 
  Country: None (occurrence: None)
  Receive Date: 20071022
  Receipt Date: 20071011
  Transmission Date: 20080405
  Serious: Yes (Hospitalization)
  Sender: FDA-Public Use
  Company Number: DE-JNJFOC-20070803464

PATIENT
  Age: 77 Year
  Sex: Female
  Weight: 47 kg

DRUGS (4)
  1. DECITABINE (DECITABINE) LYOPHILIZED POWDER [Suspect]
     Indication: MYELODYSPLASTIC SYNDROME
     Dosage: 207 MG, INTRAVENOUS
     Route: 042
     Dates: start: 20070220, end: 20070523
  2. DIOVAN [Concomitant]
  3. CONCOR (BISOPROLOL FUMARATE) [Concomitant]
  4. PANTOZOL (PANTOPRAZOLE SODIUM) [Concomitant]

REACTIONS (2)
  - GASTROENTERITIS [None]
  - PAIN [None]
